FAERS Safety Report 5289874-2 (Version None)
Quarter: 2007Q2

REPORT INFORMATION
  Report Type: 
  Country: None (occurrence: None)
  Receive Date: 20070406
  Receipt Date: 20070326
  Transmission Date: 20071010
  Serious: Yes (Other)
  Sender: FDA-Public Use
  Company Number: US-PFIZER INC-2006130213

PATIENT
  Sex: Female

DRUGS (3)
  1. CELEBREX [Suspect]
     Indication: MUSCULOSKELETAL PAIN
     Route: 048
  2. CELEBREX [Suspect]
     Indication: BONE PAIN
  3. CELEBREX [Suspect]
     Indication: CHEST PAIN

REACTIONS (3)
  - CHEST PAIN [None]
  - HYPERTENSION [None]
  - TRANSIENT ISCHAEMIC ATTACK [None]
